FAERS Safety Report 5107851-9 (Version None)
Quarter: 2006Q3

REPORT INFORMATION
  Report Type: 
  Country: None (occurrence: None)
  Receive Date: 20060919
  Receipt Date: 20060908
  Transmission Date: 20061208
  Serious: Yes (Other)
  Sender: FDA-Public Use
  Company Number: US-JNJFOC-20060902720

PATIENT
  Sex: Female

DRUGS (9)
  1. DURAGESIC-100 [Suspect]
     Indication: PAIN
     Route: 062
  2. METHOTREXATE [Concomitant]
     Indication: ARTHRALGIA
     Route: 048
  3. ENBREL [Concomitant]
     Indication: ARTHRALGIA
     Route: 058
  4. CYMBALTA [Concomitant]
     Indication: NEUROPATHY
     Route: 048
  5. NEURONTIN [Concomitant]
     Indication: NEUROPATHY
     Route: 048
  6. SOMA [Concomitant]
     Indication: MUSCLE SPASMS
     Dosage: 1-3 TIMES A DAY
     Route: 048
  7. EFFEXOR [Concomitant]
     Indication: DEPRESSION
     Route: 048
  8. FOLIC ACID [Concomitant]
  9. PROVIGIL [Concomitant]
     Indication: FATIGUE

REACTIONS (2)
  - GALACTORRHOEA [None]
  - HYPERHIDROSIS [None]
